FAERS Safety Report 14027767 (Version 1)
Quarter: 2017Q3

REPORT INFORMATION
  Report Type: Spontaneous
  Country: US (occurrence: US)
  Receive Date: 20170929
  Receipt Date: 20170929
  Transmission Date: 20171128
  Serious: Yes (Hospitalization)
  Sender: FDA-Public Use
  Company Number: US-TEVA-810729ACC

PATIENT
  Sex: Male

DRUGS (1)
  1. METFORMIN [Suspect]
     Active Substance: METFORMIN HYDROCHLORIDE
     Dosage: ON THERAPY FOR 3 WEEKS WITH AN UNSPECIFIED DOSE
     Route: 065

REACTIONS (2)
  - Dehydration [Unknown]
  - Lethargy [Unknown]
